FAERS Safety Report 20678278 (Version 3)
Quarter: 2022Q2

REPORT INFORMATION
  Report Type: Spontaneous
  Country: IT (occurrence: IT)
  Receive Date: 20220406
  Receipt Date: 20220502
  Transmission Date: 20220721
  Serious: Yes (Other)
  Sender: FDA-Public Use
  Company Number: None

PATIENT
  Age: 49 Year
  Sex: Female

DRUGS (16)
  1. IBUPROFEN [Suspect]
     Active Substance: IBUPROFEN
     Indication: Product used for unknown indication
     Dosage: UNK
     Route: 065
  2. FENTANYL [Suspect]
     Active Substance: FENTANYL
     Indication: Product used for unknown indication
     Dosage: UNK
     Route: 065
  3. POLYETHYLENE GLYCOL 4000 [Suspect]
     Active Substance: POLYETHYLENE GLYCOL 4000
     Indication: Product used for unknown indication
     Dosage: UNK
     Route: 065
  4. BUTALBITAL\CAFFEINE\PROPYPHENAZONE [Suspect]
     Active Substance: BUTALBITAL\CAFFEINE\PROPYPHENAZONE
     Indication: Product used for unknown indication
     Dosage: UNK
     Route: 065
  5. FOSFOMYCIN TROMETHAMINE [Suspect]
     Active Substance: FOSFOMYCIN TROMETHAMINE
     Indication: Product used for unknown indication
     Dosage: UNK
     Route: 065
  6. ASPIRIN [Suspect]
     Active Substance: ASPIRIN
     Indication: Product used for unknown indication
     Dosage: UNK
     Route: 065
  7. ASPIRIN [Suspect]
     Active Substance: ASPIRIN
     Dosage: UNK
     Route: 065
  8. IBUPROFEN [Suspect]
     Active Substance: IBUPROFEN
     Indication: Product used for unknown indication
     Dosage: UNK
     Route: 065
  9. KETOPROFEN LYSINE [Suspect]
     Active Substance: KETOPROFEN LYSINE
     Indication: Product used for unknown indication
     Dosage: UNK
     Route: 065
  10. KETOPROFEN LYSINE [Suspect]
     Active Substance: KETOPROFEN LYSINE
     Dosage: UNK
     Route: 065
  11. CETIRIZINE HYDROCHLORIDE [Suspect]
     Active Substance: CETIRIZINE HYDROCHLORIDE
     Indication: Product used for unknown indication
     Dosage: UNK
     Route: 065
  12. CETIRIZINE HYDROCHLORIDE [Suspect]
     Active Substance: CETIRIZINE HYDROCHLORIDE
     Dosage: UNK
     Route: 065
  13. AUGMENTIN [Suspect]
     Active Substance: AMOXICILLIN\CLAVULANATE POTASSIUM
     Indication: Product used for unknown indication
     Dosage: UNK
     Route: 048
  14. KETOROLAC TROMETHAMINE [Suspect]
     Active Substance: KETOROLAC TROMETHAMINE
     Indication: Product used for unknown indication
     Route: 065
  15. KETOROLAC TROMETHAMINE [Suspect]
     Active Substance: KETOROLAC TROMETHAMINE
     Dosage: UNK
     Route: 065
  16. FENTANYL [Suspect]
     Active Substance: FENTANYL
     Indication: Product used for unknown indication
     Dosage: UNK
     Route: 065

REACTIONS (8)
  - Loss of consciousness [Unknown]
  - Tongue paralysis [Unknown]
  - Dysentery [Unknown]
  - Gait disturbance [Unknown]
  - Coordination abnormal [Unknown]
  - Tachycardia [Unknown]
  - Vomiting [Unknown]
  - Dizziness [Unknown]
